FAERS Safety Report 6919682-5 (Version None)
Quarter: 2010Q3

REPORT INFORMATION
  Report Type: 
  Country: None (occurrence: None)
  Receive Date: 20100811
  Receipt Date: 20100806
  Transmission Date: 20110219
  Serious: Yes (Hospitalization, Other)
  Sender: FDA-Public Use
  Company Number: FR-BRISTOL-MYERS SQUIBB COMPANY-15230410

PATIENT
  Age: 81 Year
  Sex: Female

DRUGS (3)
  1. APROVEL TABS 300 MG [Suspect]
     Indication: HYPERTENSION
     Route: 048
     Dates: start: 20100716, end: 20100718
  2. COAPROVEL [Suspect]
     Indication: HYPERTENSION
     Dosage: 1 DF = 1 INTAKE
     Route: 048
  3. ALDACTAZINE [Suspect]
     Indication: HYPERTENSION
     Dosage: 1 DF = 1 INTAKE DAILY
     Route: 048
     Dates: end: 20100718

REACTIONS (5)
  - DECREASED APPETITE [None]
  - GENERAL PHYSICAL HEALTH DETERIORATION [None]
  - HYPOKALAEMIA [None]
  - HYPONATRAEMIA [None]
  - VOMITING [None]
